FAERS Safety Report 19370175 (Version 5)
Quarter: 2022Q1

REPORT INFORMATION
  Report Type: Spontaneous
  Country: US (occurrence: US)
  Receive Date: 20210603
  Receipt Date: 20220217
  Transmission Date: 20220423
  Serious: Yes (Other)
  Sender: FDA-Public Use
  Company Number: US-GILEAD-2021-0534100

PATIENT
  Age: 34 Year
  Sex: Male

DRUGS (35)
  1. ATRIPLA [Suspect]
     Active Substance: EFAVIRENZ\EMTRICITABINE\TENOFOVIR DISOPROXIL FUMARATE
     Indication: HIV infection
     Dosage: UNK
     Route: 048
     Dates: start: 2011
  2. ATRIPLA [Suspect]
     Active Substance: EFAVIRENZ\EMTRICITABINE\TENOFOVIR DISOPROXIL FUMARATE
     Dosage: UNK
     Route: 065
     Dates: start: 201511, end: 201609
  3. STRIBILD [Suspect]
     Active Substance: COBICISTAT\ELVITEGRAVIR\EMTRICITABINE\TENOFOVIR DISOPROXIL FUMARATE
     Indication: HIV infection
     Dosage: UNK
     Route: 048
     Dates: start: 2011
  4. STRIBILD [Suspect]
     Active Substance: COBICISTAT\ELVITEGRAVIR\EMTRICITABINE\TENOFOVIR DISOPROXIL FUMARATE
     Dosage: UNK
     Route: 065
     Dates: start: 20160927, end: 20170118
  5. TRUVADA [Suspect]
     Active Substance: EMTRICITABINE\TENOFOVIR DISOPROXIL FUMARATE
     Indication: Product used for unknown indication
     Dosage: UNK
     Route: 065
     Dates: end: 201511
  6. PROLIA [Concomitant]
     Active Substance: DENOSUMAB
  7. FORTEO [Concomitant]
     Active Substance: TERIPARATIDE
  8. CALCIUM [Concomitant]
     Active Substance: CALCIUM
  9. VITAMIN D NOS [Concomitant]
     Active Substance: VITAMIN D NOS
  10. MELOXICAM [Concomitant]
     Active Substance: MELOXICAM
  11. FENOFIBRATE [Concomitant]
     Active Substance: FENOFIBRATE
  12. KALETRA [Concomitant]
     Active Substance: LOPINAVIR\RITONAVIR
  13. NORVIR [Concomitant]
     Active Substance: RITONAVIR
  14. PREZCOBIX [Concomitant]
     Active Substance: COBICISTAT\DARUNAVIR ETHANOLATE
  15. RETROVIR [Concomitant]
     Active Substance: ZIDOVUDINE
  16. ACETAMINOPHEN [Concomitant]
     Active Substance: ACETAMINOPHEN
  17. AMOXICILLIN [Concomitant]
     Active Substance: AMOXICILLIN
  18. ASPIRIN [Concomitant]
     Active Substance: ASPIRIN
  19. CELECOXIB [Concomitant]
     Active Substance: CELECOXIB
  20. CHANTIX [Concomitant]
     Active Substance: VARENICLINE TARTRATE
  21. CHLORHEXIDINE [Concomitant]
     Active Substance: CHLORHEXIDINE
  22. DIPHENOXYLATE [Concomitant]
     Active Substance: DIPHENOXYLATE
  23. FLUARIX NOS [Concomitant]
     Active Substance: INFLUENZA VIRUS VACCINE
  24. GABAPENTIN [Concomitant]
     Active Substance: GABAPENTIN
  25. HYDROCODONE [Concomitant]
     Active Substance: HYDROCODONE
  26. METHYLPREDNISOLONE [Concomitant]
     Active Substance: METHYLPREDNISOLONE
  27. NAPROXEN [Concomitant]
     Active Substance: NAPROXEN
  28. NICOTINE [Concomitant]
     Active Substance: NICOTINE
  29. ONDANSETRON [Concomitant]
     Active Substance: ONDANSETRON
  30. RITONAVIR [Concomitant]
     Active Substance: RITONAVIR
  31. SULFAMETHOXAZOLE AND TRIMETHOPRIM [Concomitant]
     Active Substance: SULFAMETHOXAZOLE\TRIMETHOPRIM
  32. SULFAMETHOXAZOLE [Concomitant]
     Active Substance: SULFAMETHOXAZOLE
  33. TRAMADOL [Concomitant]
     Active Substance: TRAMADOL
  34. TRAZODONE [Concomitant]
     Active Substance: TRAZODONE HYDROCHLORIDE
  35. ZOLPIDEM [Concomitant]
     Active Substance: ZOLPIDEM TARTRATE

REACTIONS (15)
  - Acute kidney injury [Recovered/Resolved]
  - Osteoporosis [Not Recovered/Not Resolved]
  - Hip fracture [Not Recovered/Not Resolved]
  - Femur fracture [Unknown]
  - Drug ineffective [Unknown]
  - Depression [Not Recovered/Not Resolved]
  - Anxiety [Not Recovered/Not Resolved]
  - Bone density decreased [Unknown]
  - Pain [Not Recovered/Not Resolved]
  - Emotional distress [Not Recovered/Not Resolved]
  - Anhedonia [Not Recovered/Not Resolved]
  - Dysstasia [Not Recovered/Not Resolved]
  - Impaired work ability [Not Recovered/Not Resolved]
  - Exercise tolerance decreased [Not Recovered/Not Resolved]
  - Mobility decreased [Not Recovered/Not Resolved]

NARRATIVE: CASE EVENT DATE: 20151118
